FAERS Safety Report 12162120 (Version 2)
Quarter: 2016Q1

REPORT INFORMATION
  Report Type: Spontaneous
  Country: JP (occurrence: JP)
  Receive Date: 20160309
  Receipt Date: 20160330
  Transmission Date: 20160526
  Serious: Yes (Hospitalization)
  Sender: FDA-Public Use
  Company Number: JP-ELI_LILLY_AND_COMPANY-JP201603000585

PATIENT
  Age: 73 Year
  Sex: Female
  Weight: 54.8 kg

DRUGS (3)
  1. TRULICITY [Suspect]
     Active Substance: DULAGLUTIDE
     Indication: TYPE 2 DIABETES MELLITUS
     Dosage: 0.75 MG, WEEKLY (1/W)
     Route: 058
     Dates: start: 20160127, end: 20160206
  2. TRAZENTA [Concomitant]
     Active Substance: LINAGLIPTIN
     Indication: TYPE 2 DIABETES MELLITUS
     Dosage: 5 MG, QD
     Route: 048
     Dates: start: 20140607
  3. GLUCOBAY [Concomitant]
     Active Substance: ACARBOSE
     Indication: TYPE 2 DIABETES MELLITUS
     Dosage: 100 MG, TID
     Route: 048
     Dates: start: 200710

REACTIONS (1)
  - Hyperglycaemia [Recovering/Resolving]

NARRATIVE: CASE EVENT DATE: 20160206
